FAERS Safety Report 11195230 (Version 1)
Quarter: 2015Q2

REPORT INFORMATION
  Report Type: Spontaneous
  Country: US (occurrence: None)
  Receive Date: 20150612
  Receipt Date: 20150612
  Transmission Date: 20150821
  Serious: Yes (Hospitalization, Other)
  Sender: FDA-Public Use
  Company Number: US-DEXPHARM-20150506

PATIENT
  Age: 61 Year
  Sex: Male

DRUGS (1)
  1. BIOPATCH [Suspect]
     Active Substance: CHLORHEXIDINE GLUCONATE
     Indication: INFECTION PROPHYLAXIS
     Dosage: TOPICAL
     Route: 061

REACTIONS (1)
  - Skin necrosis [None]
